FAERS Safety Report 7538849-9 (Version None)
Quarter: 2011Q2

REPORT INFORMATION
  Report Type: 
  Country: None (occurrence: None)
  Receive Date: 20110524
  Receipt Date: 20110331
  Transmission Date: 20111010
  Serious: No
  Sender: FDA-Public Use
  Company Number: 030550

PATIENT
  Sex: Female

DRUGS (3)
  1. CIMZIA [Suspect]
  2. CIMZIA [Suspect]
     Indication: CROHN'S DISEASE
     Dosage: (400 MG 1X/MONTH SUBCUTANEOUS) ; (400 MG 1X/2 WEEKS SUBCUTANEOUS)
     Route: 058
     Dates: start: 20100801, end: 20110118
  3. CIMZIA [Suspect]
     Indication: CROHN'S DISEASE
     Dosage: (400 MG 1X/MONTH SUBCUTANEOUS) ; (400 MG 1X/2 WEEKS SUBCUTANEOUS)
     Route: 058
     Dates: start: 20110219

REACTIONS (2)
  - INJECTION SITE HAEMATOMA [None]
  - INJECTION SITE SWELLING [None]
